FAERS Safety Report 5401902-X (Version None)
Quarter: 2007Q3

REPORT INFORMATION
  Report Type: 
  Country: None (occurrence: None)
  Receive Date: 20070731
  Receipt Date: 20070718
  Transmission Date: 20080115
  Serious: Yes (Other)
  Sender: FDA-Public Use
  Company Number: US-SHR-US-2007-026729

PATIENT
  Age: 55 Year
  Sex: Female
  Weight: 106.58 kg

DRUGS (1)
  1. BETASERON [Suspect]
     Indication: RELAPSING-REMITTING MULTIPLE SCLEROSIS
     Dosage: 4 MIU, EVERY 2D
     Route: 058
     Dates: start: 20070531, end: 20070628

REACTIONS (3)
  - FATIGUE [None]
  - NAUSEA [None]
  - WEIGHT INCREASED [None]
